FAERS Safety Report 13549977 (Version 1)
Quarter: 2017Q2

REPORT INFORMATION
  Report Type: Spontaneous
  Country: US (occurrence: US)
  Receive Date: 20170516
  Receipt Date: 20170516
  Transmission Date: 20170830
  Serious: Yes (Hospitalization, Other)
  Sender: FDA-Public Use
  Company Number: US-GLAXOSMITHKLINE-US2017070891

PATIENT
  Sex: Female

DRUGS (1)
  1. ADVAIR DISKUS [Suspect]
     Active Substance: FLUTICASONE PROPIONATE\SALMETEROL XINAFOATE
     Indication: EMPHYSEMA
     Dosage: UNK

REACTIONS (6)
  - Macular degeneration [Not Recovered/Not Resolved]
  - Aortic aneurysm [Unknown]
  - Intentional underdose [Unknown]
  - Drug effect incomplete [Unknown]
  - Inability to afford medication [Unknown]
  - Intentional product use issue [Unknown]
